FAERS Safety Report 18949261 (Version 1)
Quarter: 2021Q1

REPORT INFORMATION
  Report Type: Spontaneous
  Country: None (occurrence: NL)
  Receive Date: 20210227
  Receipt Date: 20210227
  Transmission Date: 20210420
  Serious: Yes (Hospitalization)
  Sender: FDA-Public Use
  Company Number: NL-B.BRAUN MEDICAL INC.-2107397

PATIENT
  Age: 41 Year
  Sex: Female
  Weight: 56.6 kg

DRUGS (2)
  1. ACETAZOLAMIDE. [Suspect]
     Active Substance: ACETAZOLAMIDE
     Dates: start: 20210123, end: 20210123
  2. 20% MANNITOL INJECTION USP 0264?7578?10 0264?7578?20 [Suspect]
     Active Substance: MANNITOL
     Indication: ANGLE CLOSURE GLAUCOMA
     Dates: start: 20210123, end: 20210123

REACTIONS (8)
  - Hyponatraemia [None]
  - Chest pain [None]
  - Bradycardia [None]
  - Muscle spasms [None]
  - Hypotension [None]
  - Metabolic acidosis [None]
  - Paraesthesia [None]
  - Urinary retention [None]
